FAERS Safety Report 9859717 (Version 2)
Quarter: 2014Q1

REPORT INFORMATION
  Report Type: Spontaneous
  Country: PH (occurrence: PH)
  Receive Date: 20140131
  Receipt Date: 20140206
  Transmission Date: 20141002
  Serious: Yes (Death)
  Sender: FDA-Public Use
  Company Number: PH-009507513-1401PHL013497

PATIENT
  Age: 75 Year
  Sex: Female

DRUGS (1)
  1. JANUMET [Suspect]
     Dosage: ONE TABLET, ONCE A DAY
     Route: 048
     Dates: start: 20120816

REACTIONS (1)
  - Adverse event [Fatal]
